FAERS Safety Report 9791679 (Version 1)
Quarter: 2014Q1

REPORT INFORMATION
  Report Type: Spontaneous
  Country: US (occurrence: US)
  Receive Date: 20140102
  Receipt Date: 20140102
  Transmission Date: 20141002
  Serious: Yes (Other)
  Sender: FDA-Public Use
  Company Number: US-JNJFOC-20131213487

PATIENT
  Age: 74 Year
  Sex: Female
  Weight: 49.9 kg

DRUGS (3)
  1. BENADRYL D [Suspect]
     Indication: NASAL CONGESTION
     Dosage: NIGHTLY
     Route: 048
     Dates: start: 20131218, end: 20131218
  2. BENADRYL D [Suspect]
     Indication: SINUS DISORDER
     Dosage: NIGHTLY
     Route: 048
     Dates: start: 20131218, end: 20131218
  3. XANAX [Concomitant]
     Indication: PRODUCT USED FOR UNKNOWN INDICATION
     Dosage: HALF DAILY
     Route: 065

REACTIONS (5)
  - Blood pressure increased [Recovering/Resolving]
  - Palpitations [Recovering/Resolving]
  - Hyperhidrosis [Recovering/Resolving]
  - Tremor [Recovering/Resolving]
  - Expired drug administered [Unknown]
